FAERS Safety Report 25691310 (Version 2)
Quarter: 2025Q3

REPORT INFORMATION
  Report Type: Spontaneous
  Country: US (occurrence: US)
  Receive Date: 20250818
  Receipt Date: 20250828
  Transmission Date: 20251020
  Serious: Yes (Death, Hospitalization, Other)
  Sender: ELI LILLY AND COMPANY
  Company Number: US-ELI_LILLY_AND_COMPANY-US202508006856

PATIENT
  Sex: Female

DRUGS (4)
  1. ERBITUX [Suspect]
     Active Substance: CETUXIMAB
     Indication: Product used for unknown indication
     Route: 065
  2. ERBITUX [Suspect]
     Active Substance: CETUXIMAB
     Route: 065
     Dates: start: 20250707, end: 202507
  3. BRAFTOVI [Suspect]
     Active Substance: ENCORAFENIB
     Indication: Colon cancer
     Dosage: 300 MG, DAILY
     Route: 048
     Dates: start: 20250618, end: 20250717
  4. MEKTOVI [Concomitant]
     Active Substance: BINIMETINIB
     Indication: Product used for unknown indication

REACTIONS (15)
  - Tachycardia [Fatal]
  - Urinary retention [Fatal]
  - Generalised oedema [Fatal]
  - Mental disorder [Unknown]
  - Coccydynia [Unknown]
  - Malignant neoplasm progression [Unknown]
  - Oedema peripheral [Not Recovered/Not Resolved]
  - Localised oedema [Unknown]
  - Hypoaesthesia [Unknown]
  - Somnolence [Unknown]
  - Pain in extremity [Recovering/Resolving]
  - Dermatitis acneiform [Unknown]
  - Arthralgia [Unknown]
  - Chills [Recovered/Resolved]
  - Diarrhoea [Unknown]

NARRATIVE: CASE EVENT DATE: 20250101
